FAERS Safety Report 8410557-1 (Version None)
Quarter: 2012Q2

REPORT INFORMATION
  Report Type: 
  Country: None (occurrence: None)
  Receive Date: 20120605
  Receipt Date: 20120524
  Transmission Date: 20120825
  Serious: Yes (Hospitalization)
  Sender: FDA-Public Use
  Company Number: IT-BRISTOL-MYERS SQUIBB COMPANY-16629735

PATIENT
  Age: 57 Year
  Sex: Male

DRUGS (3)
  1. MAGNESIUM HYDROXIDE TAB [Concomitant]
  2. SPRYCEL [Suspect]
     Indication: CHRONIC MYELOID LEUKAEMIA
     Route: 048
     Dates: start: 20070827, end: 20080320
  3. INSULINE [Concomitant]

REACTIONS (2)
  - DIABETES MELLITUS [None]
  - PERIPHERAL SENSORIMOTOR NEUROPATHY [None]
